FAERS Safety Report 6355038-4 (Version None)
Quarter: 2009Q3

REPORT INFORMATION
  Report Type: 
  Country: None (occurrence: None)
  Receive Date: 20090914
  Receipt Date: 20090905
  Transmission Date: 20100115
  Serious: Yes (Life-Threatening, Hospitalization, Other)
  Sender: FDA-Public Use
  Company Number: B0592838A

PATIENT
  Age: 17 Year
  Sex: Male

DRUGS (5)
  1. ARIXTRA [Suspect]
     Indication: PROPHYLAXIS
     Dosage: 2.5MG PER DAY
     Route: 058
     Dates: start: 20090818, end: 20090828
  2. HYDROCORTISONE [Concomitant]
  3. SOLU-MEDROL [Concomitant]
  4. ALBUMIN (HUMAN) [Concomitant]
  5. PLASIL [Concomitant]

REACTIONS (3)
  - HAEMATURIA [None]
  - HAEMORRHAGE [None]
  - PLEURAL EFFUSION [None]
